FAERS Safety Report 23875463 (Version 3)
Quarter: 2024Q3

REPORT INFORMATION
  Report Type: Spontaneous
  Country: US (occurrence: None)
  Receive Date: 20240520
  Receipt Date: 20240715
  Transmission Date: 20241017
  Serious: No
  Sender: ASTRAZENECA
  Company Number: 2024A109662

PATIENT
  Sex: Male

DRUGS (1)
  1. CALQUENCE [Suspect]
     Active Substance: ACALABRUTINIB
     Route: 048

REACTIONS (9)
  - Back pain [Unknown]
  - Arthralgia [Unknown]
  - Ear discomfort [Unknown]
  - Hypoaesthesia [Unknown]
  - Drug hypersensitivity [Unknown]
  - Urinary tract infection [Unknown]
  - Testicular swelling [Unknown]
  - Weight decreased [Unknown]
  - Pain [Unknown]
